FAERS Safety Report 12472017 (Version 1)
Quarter: 2016Q2

REPORT INFORMATION
  Report Type: Spontaneous
  Country: US (occurrence: None)
  Receive Date: 20160615
  Receipt Date: 20160615
  Transmission Date: 20160815
  Serious: Yes (Hospitalization)
  Sender: FDA-Public Use
  Company Number: None

PATIENT
  Age: 61 Year
  Sex: Female
  Weight: 92.8 kg

DRUGS (6)
  1. PRINIVIL [Concomitant]
     Active Substance: LISINOPRIL
  2. XARELTO [Suspect]
     Active Substance: RIVAROXABAN
     Indication: ATRIAL FIBRILLATION
     Dosage: CHRONIC
     Route: 048
  3. LIPITOR [Concomitant]
     Active Substance: ATORVASTATIN CALCIUM
  4. TIKOSYN [Concomitant]
     Active Substance: DOFETILIDE
  5. ECOTRIN [Suspect]
     Active Substance: ASPIRIN
     Indication: ATRIAL FIBRILLATION
     Dosage: CHRONIC
     Route: 048
  6. COREG [Concomitant]
     Active Substance: CARVEDILOL

REACTIONS (3)
  - Gastrointestinal haemorrhage [None]
  - Gastritis erosive [None]
  - Rectal polyp [None]

NARRATIVE: CASE EVENT DATE: 20160107
